FAERS Safety Report 25806214 (Version 2)
Quarter: 2025Q3

REPORT INFORMATION
  Report Type: Spontaneous
  Country: EU (occurrence: EU)
  Receive Date: 20250916
  Receipt Date: 20250918
  Transmission Date: 20251020
  Serious: Yes (Other)
  Sender: BAXTER
  Company Number: EU-BAXTER-2025BAX021249

PATIENT
  Age: 68 Year
  Sex: Female

DRUGS (1)
  1. SCOPOLAMINE [Suspect]
     Active Substance: SCOPOLAMINE
     Indication: Motion sickness
     Route: 062
     Dates: start: 20250823

REACTIONS (6)
  - Tongue paralysis [Unknown]
  - Dysarthria [Unknown]
  - Fatigue [Unknown]
  - Balance disorder [Unknown]
  - Dizziness [Unknown]
  - Dry mouth [Unknown]

NARRATIVE: CASE EVENT DATE: 20250823
